FAERS Safety Report 8057007-5 (Version None)
Quarter: 2012Q1

REPORT INFORMATION
  Report Type: 
  Country: None (occurrence: None)
  Receive Date: 20120119
  Receipt Date: 20120117
  Transmission Date: 20120608
  Serious: Yes (Death)
  Sender: FDA-Public Use
  Company Number: AU-B.I. PHARMACEUTICALS,INC./RIDGEFIELD-2012-AU-00094AU

PATIENT
  Sex: Male
  Weight: 110 kg

DRUGS (6)
  1. PRADAXA [Suspect]
     Indication: ATRIAL FIBRILLATION
  2. CRESTOR [Concomitant]
  3. ACETAMINOPHEN [Concomitant]
  4. CORDILOX [Concomitant]
  5. PRADAXA [Suspect]
     Indication: CEREBROVASCULAR ACCIDENT PROPHYLAXIS
     Dosage: 220 MG
     Dates: start: 20110831, end: 20111213
  6. METFORMIN HCL [Concomitant]

REACTIONS (1)
  - CARDIAC ARREST [None]
